FAERS Safety Report 21322647 (Version 1)
Quarter: 2022Q3

REPORT INFORMATION
  Report Type: Report from Study
  Country: CA (occurrence: CA)
  Receive Date: 20220912
  Receipt Date: 20220912
  Transmission Date: 20221026
  Serious: Yes (Other)
  Sender: FDA-Public Use
  Company Number: CA-NOVARTISPH-NVSC2022CA198301

PATIENT
  Sex: Male

DRUGS (5)
  1. NEORAL [Suspect]
     Active Substance: CYCLOSPORINE
     Indication: Product used for unknown indication
     Dosage: UNK
     Route: 048
     Dates: start: 2022, end: 2022
  2. NEORAL [Suspect]
     Active Substance: CYCLOSPORINE
     Dosage: UNK
     Route: 065
     Dates: start: 202208
  3. METHOTREXATE [Concomitant]
     Active Substance: METHOTREXATE
     Indication: Product used for unknown indication
     Route: 048
  4. SORIATANE [Concomitant]
     Active Substance: ACITRETIN
     Indication: Product used for unknown indication
     Route: 048
  5. SORIATANE [Concomitant]
     Active Substance: ACITRETIN
     Dosage: UNK
     Route: 065
     Dates: start: 202207

REACTIONS (10)
  - Haematochezia [Unknown]
  - Pruritus [Unknown]
  - Pain of skin [Unknown]
  - Emotional distress [Unknown]
  - Constipation [Unknown]
  - Hot flush [Unknown]
  - Vomiting [Unknown]
  - Headache [Unknown]
  - Psoriasis [Unknown]
  - Drug ineffective [Unknown]
